FAERS Safety Report 5892378-7 (Version None)
Quarter: 2008Q3

REPORT INFORMATION
  Report Type: 
  Country: None (occurrence: None)
  Receive Date: 20080918
  Receipt Date: 20080918
  Transmission Date: 20090109
  Serious: No
  Sender: FDA-Public Use
  Company Number: None

PATIENT
  Age: 51 Year
  Sex: Female
  Weight: 63.5036 kg

DRUGS (2)
  1. CLONIDINE [Suspect]
     Indication: HOT FLUSH
     Dosage: 0.1 MG DAILY PO
     Route: 048
     Dates: start: 20080801, end: 20080916
  2. CLONIDINE [Suspect]
     Indication: HYPERTENSION
     Dosage: 0.1 MG DAILY PO
     Route: 048
     Dates: start: 20080801, end: 20080916

REACTIONS (4)
  - DRUG INEFFECTIVE [None]
  - HOT FLUSH [None]
  - HYPERTENSION [None]
  - PHARMACEUTICAL PRODUCT COMPLAINT [None]
